FAERS Safety Report 5161363-5 (Version None)
Quarter: 2006Q4

REPORT INFORMATION
  Report Type: 
  Country: None (occurrence: None)
  Receive Date: 20061130
  Receipt Date: 20060920
  Transmission Date: 20070319
  Serious: Yes (Hospitalization)
  Sender: FDA-Public Use
  Company Number: AT-ROCHE-463998

PATIENT
  Age: 43 Year
  Sex: Male
  Weight: 65 kg

DRUGS (13)
  1. PEG-INTERFERON ALFA 2A (RO 25-8310) [Suspect]
     Dosage: FORM = INJECTION DATE OF LAST DOSE PRIOR TO SAE = 15 SEPTEMBER 2006
     Route: 058
     Dates: start: 20060901
  2. RIBAVIRIN [Suspect]
     Route: 048
     Dates: start: 20060901, end: 20060919
  3. RIBAVIRIN [Suspect]
     Route: 048
     Dates: start: 20060922
  4. STAVUDINE [Concomitant]
     Dates: start: 20010101
  5. TENOFOVIR [Concomitant]
     Dates: start: 20010101
  6. EFAVIRENZ [Concomitant]
     Dates: start: 20060101
  7. UNSPECIFIED DRUG [Concomitant]
     Dosage: DRUG REPORTED AS FLUORONAID
     Dates: start: 20060415
  8. RUTOSID [Concomitant]
     Dates: start: 20060415
  9. FUROSEMIDE [Concomitant]
     Dates: start: 20010309
  10. SPIRONOLACTONE + BUTIZIDE [Concomitant]
     Dates: start: 20010309
  11. SALMETEROL [Concomitant]
     Dates: start: 20030901
  12. PANTOPRAZOL [Concomitant]
     Dates: start: 20011001
  13. OXAZEPAM [Concomitant]
     Dates: start: 20010309

REACTIONS (3)
  - HYPOKALAEMIA [None]
  - HYPONATRAEMIA [None]
  - SYNCOPE [None]
